FAERS Safety Report 8832889 (Version 1)
Quarter: 2012Q4

REPORT INFORMATION
  Report Type: Spontaneous
  Country: US (occurrence: None)
  Receive Date: 20121009
  Receipt Date: 20121009
  Transmission Date: 20130627
  Serious: Yes (Other)
  Sender: FDA-Public Use
  Company Number: None

PATIENT
  Age: 55 Year
  Sex: Female

DRUGS (5)
  1. CREST PRO-HEALTH [Suspect]
     Dosage: 1 applic, 1 only, intraoral
     Route: 048
     Dates: start: 20120202, end: 20120202
  2. LIPITOR (ATORVASTATIN CALCIUM) [Concomitant]
  3. LEVOTHYROXINE (LEVOTMYRDXINE) [Concomitant]
  4. SPIRONOLACTONE (SPIRONOLACIONE) [Concomitant]
  5. LORATADINE (LORATADINE) [Concomitant]

REACTIONS (14)
  - Dyspnoea [None]
  - Pharyngeal oedema [None]
  - Dysphagia [None]
  - Chemical burn of gastrointestinal tract [None]
  - Oedema mouth [None]
  - Stomatitis [None]
  - Drug hypersensitivity [None]
  - Throat irritation [None]
  - Throat tightness [None]
  - Dysphonia [None]
  - Mouth ulceration [None]
  - Oral pain [None]
  - Expired drug administered [None]
  - Oral disorder [None]
